FAERS Safety Report 7520190-1 (Version None)
Quarter: 2011Q2

REPORT INFORMATION
  Report Type: 
  Country: None (occurrence: None)
  Receive Date: 20110602
  Receipt Date: 20110531
  Transmission Date: 20111010
  Serious: Yes (Other)
  Sender: FDA-Public Use
  Company Number: US-AMGEN-USASP2011026337

PATIENT
  Sex: Female
  Weight: 91.156 kg

DRUGS (7)
  1. LISINOPRIL [Concomitant]
     Dosage: 20 MG, QD
     Route: 048
     Dates: start: 20070101
  2. CORTICOSTEROIDS [Concomitant]
  3. LASIX [Concomitant]
     Dosage: 80 MG, QD
     Dates: start: 20100101
  4. DIGOXIN [Concomitant]
     Dosage: 0.125 MG, QD
     Route: 048
  5. ISOSORBIDE DINITRATE [Concomitant]
     Dosage: 10 MG, TID
     Route: 048
  6. NPLATE [Suspect]
     Indication: IDIOPATHIC THROMBOCYTOPENIC PURPURA
     Dates: start: 20100720, end: 20110315
  7. COREG [Concomitant]
     Dosage: 25 MG, BID
     Route: 048

REACTIONS (1)
  - CARDIAC DISORDER [None]
